FAERS Safety Report 9721350 (Version 2)
Quarter: 2014Q1

REPORT INFORMATION
  Report Type: Spontaneous
  Country: US (occurrence: US)
  Receive Date: 20131129
  Receipt Date: 20140304
  Transmission Date: 20141002
  Serious: No
  Sender: FDA-Public Use
  Company Number: US-PFIZER INC-2013339006

PATIENT
  Age: 47 Year
  Sex: Male

DRUGS (2)
  1. XALKORI [Suspect]
     Indication: LUNG NEOPLASM MALIGNANT
     Dosage: 200 MG, 2X/DAY
     Route: 048
     Dates: start: 201309
  2. XALKORI [Suspect]
     Dosage: 250 MG, 2X/DAY (TAKE ONE CAPSULE EVERY 12 HOURS)
     Dates: start: 20131127

REACTIONS (4)
  - Nausea [Unknown]
  - Diarrhoea [Unknown]
  - Dyspepsia [Unknown]
  - Vein disorder [Unknown]
